FAERS Safety Report 25608345 (Version 2)
Quarter: 2025Q3

REPORT INFORMATION
  Report Type: Spontaneous
  Country: CN (occurrence: CN)
  Receive Date: 20250726
  Receipt Date: 20250806
  Transmission Date: 20251021
  Serious: Yes (Life-Threatening, Hospitalization)
  Sender: ACCORD
  Company Number: CN-MLMSERVICE-20250709-PI570608-00137-1

PATIENT
  Age: 66 Year
  Sex: Female
  Weight: 70 kg

DRUGS (4)
  1. ESOMEPRAZOLE [Suspect]
     Active Substance: ESOMEPRAZOLE
     Indication: Antacid therapy
     Dosage: FOR ACID SUPPRESSION (40MG IV.GTT BID)
     Route: 042
  2. OCTREOTIDE ACETATE [Concomitant]
     Active Substance: OCTREOTIDE ACETATE
     Indication: Vasoconstriction
  3. ESOMEPRAZOLE [Suspect]
     Active Substance: ESOMEPRAZOLE
     Indication: Haematemesis
     Dosage: FOR ACID SUPPRESSION (40MG IV.GTT BID)
     Route: 042
  4. ESOMEPRAZOLE [Suspect]
     Active Substance: ESOMEPRAZOLE
     Indication: Melaena
     Dosage: FOR ACID SUPPRESSION (40MG IV.GTT BID)
     Route: 042

REACTIONS (1)
  - Thrombocytopenia [Recovered/Resolved]
